FAERS Safety Report 22367180 (Version 4)
Quarter: 2023Q4

REPORT INFORMATION
  Report Type: Spontaneous
  Country: EU (occurrence: EU)
  Receive Date: 20230525
  Receipt Date: 20231227
  Transmission Date: 20240110
  Serious: Yes (Death, Life-Threatening, Other)
  Sender: FDA-Public Use
  Company Number: EU-MLMSERVICE-20221228-4007185-1

PATIENT

DRUGS (7)
  1. BUPRENORPHINE HYDROCHLORIDE [Suspect]
     Active Substance: BUPRENORPHINE HYDROCHLORIDE
     Indication: Drug abuse
     Route: 045
  2. NORDAZEPAM [Suspect]
     Active Substance: NORDAZEPAM
  3. CLONAZEPAM [Suspect]
     Active Substance: CLONAZEPAM
     Indication: Drug abuse
  4. DIAZEPAM [Suspect]
     Active Substance: DIAZEPAM
     Indication: Drug abuse
  5. OXAZEPAM [Suspect]
     Active Substance: OXAZEPAM
     Indication: Drug abuse
  6. PREGABALIN [Suspect]
     Active Substance: PREGABALIN
     Indication: Drug dependence
  7. 11-NOR-9-CARBOXY-.DELTA.9-TETRAHYDROCANNABINOL [Suspect]
     Active Substance: 11-NOR-9-CARBOXY-.DELTA.9-TETRAHYDROCANNABINOL
     Indication: Product used for unknown indication

REACTIONS (5)
  - Drug abuse [Fatal]
  - Brain oedema [Fatal]
  - Visceral congestion [Fatal]
  - Pulmonary oedema [Fatal]
  - Intentional product use issue [Fatal]
